FAERS Safety Report 8045531-0 (Version None)
Quarter: 2012Q1

REPORT INFORMATION
  Report Type: 
  Country: None (occurrence: None)
  Receive Date: 20120113
  Receipt Date: 20120106
  Transmission Date: 20120608
  Serious: Yes (Death)
  Sender: FDA-Public Use
  Company Number: TR-MEDIMMUNE-MEDI-0014328

PATIENT
  Sex: Female
  Weight: 5 kg

DRUGS (1)
  1. SYNAGIS [Suspect]
     Route: 030
     Dates: start: 20111003, end: 20111202

REACTIONS (1)
  - CARDIAC DISORDER [None]
